FAERS Safety Report 9767321 (Version 1)
Quarter: 2013Q4

REPORT INFORMATION
  Report Type: Spontaneous
  Country: US (occurrence: None)
  Receive Date: 20131216
  Receipt Date: 20131216
  Transmission Date: 20140711
  Serious: Yes (Other)
  Sender: FDA-Public Use
  Company Number: None

PATIENT
  Age: 24 Year
  Sex: Male
  Weight: 81.8 kg

DRUGS (3)
  1. EFFEXOR XR [Suspect]
     Indication: CONCUSSION
     Route: 048
     Dates: start: 20131021, end: 20131207
  2. EFFEXOR XR [Suspect]
     Indication: COGNITIVE DISORDER
     Route: 048
     Dates: start: 20131021, end: 20131207
  3. EFFEXOR XR [Suspect]
     Indication: DEPRESSION
     Route: 048
     Dates: start: 20131021, end: 20131207

REACTIONS (8)
  - Migraine [None]
  - Decreased appetite [None]
  - Asthenia [None]
  - Nausea [None]
  - Chest discomfort [None]
  - Genital abscess [None]
  - Drug hypersensitivity [None]
  - Abscess rupture [None]
